FAERS Safety Report 17925564 (Version 2)
Quarter: 2020Q3

REPORT INFORMATION
  Report Type: Spontaneous
  Country: US (occurrence: US)
  Receive Date: 20200623
  Receipt Date: 20200805
  Transmission Date: 20201103
  Serious: No
  Sender: FDA-Public Use
  Company Number: US-ALEXION PHARMACEUTICALS INC.-A202008447

PATIENT
  Age: 11 Year
  Sex: Male

DRUGS (2)
  1. STRENSIQ [Suspect]
     Active Substance: ASFOTASE ALFA
     Dosage: UNK
     Route: 065
     Dates: start: 20151111
  2. STRENSIQ [Suspect]
     Active Substance: ASFOTASE ALFA
     Indication: HYPOPHOSPHATASIA
     Dosage: UNK
     Route: 058
     Dates: start: 2015

REACTIONS (7)
  - Injection site reaction [Unknown]
  - Injection site hypoaesthesia [Unknown]
  - Injection site atrophy [Unknown]
  - Blister [Unknown]
  - Tissue injury [Not Recovered/Not Resolved]
  - Skin laxity [Unknown]
  - Injection site hypertrophy [Unknown]
